FAERS Safety Report 22539299 (Version 2)
Quarter: 2023Q2

REPORT INFORMATION
  Report Type: Spontaneous
  Country: US (occurrence: US)
  Receive Date: 20230609
  Receipt Date: 20230626
  Transmission Date: 20230721
  Serious: No
  Sender: FDA-Public Use
  Company Number: US-PFIZER INC-PV202300100320

PATIENT
  Age: 12 Year
  Sex: Female

DRUGS (1)
  1. GENOTROPIN [Suspect]
     Active Substance: SOMATROPIN
     Dosage: 2 MG, DAILY
     Dates: start: 2020

REACTIONS (5)
  - Injection site pain [Unknown]
  - Injection site injury [Unknown]
  - Injection site haemorrhage [Unknown]
  - Device use issue [Unknown]
  - Device failure [Unknown]
